FAERS Safety Report 5104885-5 (Version None)
Quarter: 2006Q3

REPORT INFORMATION
  Report Type: 
  Country: None (occurrence: None)
  Receive Date: 20060914
  Receipt Date: 20060908
  Transmission Date: 20061208
  Serious: Yes (Other)
  Sender: FDA-Public Use
  Company Number: 2006UW17716

PATIENT
  Age: 27 Year
  Sex: Female
  Weight: 89.8 kg

DRUGS (4)
  1. PULMICORT [Suspect]
     Indication: ASTHMA
     Route: 055
     Dates: start: 20060801
  2. BLOOD THINNER [Concomitant]
     Indication: COAGULOPATHY
     Dates: end: 20060908
  3. NEXIUM [Concomitant]
     Indication: GASTROOESOPHAGEAL REFLUX DISEASE
     Route: 048
  4. FOLIC ACID [Concomitant]

REACTIONS (2)
  - CHEST DISCOMFORT [None]
  - PULMONARY EMBOLISM [None]
